FAERS Safety Report 24020161 (Version 7)
Quarter: 2025Q4

REPORT INFORMATION
  Report Type: Report from Study
  Country: CN (occurrence: CN)
  Receive Date: 20240627
  Receipt Date: 20251222
  Transmission Date: 20260118
  Serious: Yes (Death, Other)
  Sender: PFIZER
  Company Number: CN-TAKEDA-2023TUS116114

PATIENT
  Age: 79 Year
  Sex: Female

DRUGS (4)
  1. ADCETRIS [Suspect]
     Active Substance: BRENTUXIMAB VEDOTIN
     Indication: Peripheral T-cell lymphoma unspecified
     Dosage: 81 MILLIGRAM, Q4WEEKS
     Route: 041
     Dates: start: 20230928
  2. ADCETRIS [Suspect]
     Active Substance: BRENTUXIMAB VEDOTIN
     Dosage: 81 MILLIGRAM, Q4WEEKS
     Route: 041
     Dates: start: 20231026
  3. ADCETRIS [Suspect]
     Active Substance: BRENTUXIMAB VEDOTIN
     Dosage: 77 MILLIGRAM, Q4WEEKS
     Route: 041
     Dates: start: 20231122
  4. ADCETRIS [Suspect]
     Active Substance: BRENTUXIMAB VEDOTIN
     Dosage: 77 MILLIGRAM, Q4WEEKS
     Route: 041
     Dates: start: 20231212

REACTIONS (5)
  - Non-Hodgkin^s lymphoma [Fatal]
  - Malignant neoplasm progression [Fatal]
  - Myelosuppression [Recovered/Resolved]
  - Haematoma [Recovered/Resolved]
  - Lymphadenopathy [Not Recovered/Not Resolved]

NARRATIVE: CASE EVENT DATE: 20231007
